FAERS Safety Report 4720698-8 (Version None)
Quarter: 2005Q3

REPORT INFORMATION
  Report Type: 
  Country: None (occurrence: None)
  Receive Date: 20050719
  Receipt Date: 20050705
  Transmission Date: 20060218
  Serious: Yes (Hospitalization, Disabling)
  Sender: FDA-Public Use
  Company Number: CIP05001582

PATIENT
  Age: 36 Year
  Sex: Female

DRUGS (4)
  1. ASACOL [Suspect]
     Indication: COLITIS ULCERATIVE
     Dosage: 3600 MG DAILY, ORAL
     Route: 048
     Dates: start: 20010101, end: 20050101
  2. ZOLOFT (SERTRALIEN HYDROCHLORIDE) [Concomitant]
  3. MERCAPTOPURINE [Concomitant]
  4. PREDNISONE [Concomitant]

REACTIONS (2)
  - DIALYSIS [None]
  - RENAL FAILURE [None]
